FAERS Safety Report 5870921-1 (Version None)
Quarter: 2008Q3

REPORT INFORMATION
  Report Type: 
  Country: None (occurrence: None)
  Receive Date: 20080904
  Receipt Date: 20080827
  Transmission Date: 20090109
  Serious: Yes (Other)
  Sender: FDA-Public Use
  Company Number: US-BAYER-200813545BCC

PATIENT
  Age: 68 Year
  Sex: Male
  Weight: 52 kg

DRUGS (2)
  1. ALEVE [Suspect]
     Indication: MUSCULOSKELETAL PAIN
     Route: 048
     Dates: start: 20080801
  2. HUMULIN R [Concomitant]

REACTIONS (1)
  - BLOOD GLUCOSE INCREASED [None]
